FAERS Safety Report 12997832 (Version 2)
Quarter: 2016Q4

REPORT INFORMATION
  Report Type: Other
  Country: US (occurrence: US)
  Receive Date: 20161205
  Receipt Date: 20161228
  Transmission Date: 20170207
  Serious: Yes (Other)
  Sender: FDA-Public Use
  Company Number: US-BELCHER PHARMACEUTICALS, LLC-2016VTS00316

PATIENT
  Age: 37 Year
  Sex: Male
  Weight: 58.96 kg

DRUGS (5)
  1. METHSCOPOLAMINE [Concomitant]
     Active Substance: METHSCOPOLAMINE\METHSCOPOLAMINE BROMIDE
     Dosage: 2.5 MG, 1X/DAY
  2. FISH OIL [Concomitant]
     Active Substance: FISH OIL
     Dosage: 1 DOSAGE UNITS, 1X/DAY
  3. VITAMIN D3 [Concomitant]
     Active Substance: CHOLECALCIFEROL
     Dosage: 1 DOSAGE UNITS, 1X/DAY
  4. HYOSCYAMINE SULFATE SL [Suspect]
     Active Substance: HYOSCYAMINE SULFATE
     Indication: IRRITABLE BOWEL SYNDROME
     Dosage: 0.125 MG, 2X/DAY
     Route: 060
     Dates: start: 201607
  5. PRILOSEC [Concomitant]
     Active Substance: OMEPRAZOLE MAGNESIUM
     Dosage: 20 MG, EVERY 48 HOURS

REACTIONS (13)
  - Dry mouth [Recovering/Resolving]
  - Chest pain [Recovered/Resolved]
  - Dizziness postural [None]
  - Vision blurred [Recovered/Resolved]
  - Calcium ionised decreased [None]
  - Dehydration [Recovered/Resolved]
  - Anion gap increased [None]
  - Mydriasis [Recovered/Resolved]
  - Heart rate increased [Recovered/Resolved]
  - Palpitations [None]
  - Bundle branch block right [None]
  - Bundle branch block right [Not Recovered/Not Resolved]
  - Dizziness [Recovered/Resolved]

NARRATIVE: CASE EVENT DATE: 2016
